FAERS Safety Report 10343753 (Version 2)
Quarter: 2014Q3

REPORT INFORMATION
  Report Type: Spontaneous
  Country: CN (occurrence: CN)
  Receive Date: 20140725
  Receipt Date: 20140805
  Transmission Date: 20150326
  Serious: Yes (Other)
  Sender: FDA-Public Use
  Company Number: CN-ABBVIE-14P-035-1263552-00

PATIENT
  Age: 29 Year
  Sex: Male

DRUGS (1)
  1. DEPAKINE CHRONO [Suspect]
     Active Substance: VALPROATE SODIUM
     Indication: EPILEPSY
     Dosage: EXTENDED RELEASE
     Route: 048
     Dates: start: 20140401

REACTIONS (5)
  - Petit mal epilepsy [Recovered/Resolved]
  - Tremor [Recovered/Resolved]
  - Drug level decreased [Recovered/Resolved]
  - Syncope [Recovered/Resolved]
  - Medication residue present [Recovered/Resolved]

NARRATIVE: CASE EVENT DATE: 201406
